FAERS Safety Report 13233737 (Version 5)
Quarter: 2018Q3

REPORT INFORMATION
  Report Type: Spontaneous
  Country: GB (occurrence: GB)
  Receive Date: 20170215
  Receipt Date: 20180711
  Transmission Date: 20181010
  Serious: Yes (Hospitalization, Other)
  Sender: FDA-Public Use
  Company Number: GB-CIPLA LTD.-2017GB01824

PATIENT

DRUGS (21)
  1. LOTRIDERM [Concomitant]
     Active Substance: BETAMETHASONE DIPROPIONATE\CLOTRIMAZOLE
     Indication: PSORIASIS
     Dosage: UNK
     Route: 065
     Dates: start: 20150626
  2. FUROSEMIDE. [Suspect]
     Active Substance: FUROSEMIDE
     Indication: LEFT VENTRICULAR DYSFUNCTION
     Dosage: 40 MG, PER DAY
     Route: 065
     Dates: start: 20160402
  3. ATORVASTATIN [Concomitant]
     Active Substance: ATORVASTATIN
     Indication: CARDIOVASCULAR DISORDER
     Dosage: UNK
     Route: 065
     Dates: start: 20130708
  4. FOLIC ACID. [Concomitant]
     Active Substance: FOLIC ACID
     Indication: ANAEMIA
     Dosage: UNK
     Route: 065
     Dates: start: 20131211
  5. IVABRADINE [Suspect]
     Active Substance: IVABRADINE
     Indication: ANGINA PECTORIS
     Dosage: 5 MG, PER DAY
     Route: 065
     Dates: start: 20150211
  6. ISOSORBIDE MONONITRATE. [Suspect]
     Active Substance: ISOSORBIDE MONONITRATE
     Indication: ANGINA PECTORIS
     Dosage: 10 MG, PER DAY
     Route: 048
     Dates: start: 20160205
  7. QUETIAPINE. [Suspect]
     Active Substance: QUETIAPINE
     Indication: DEPRESSION
     Dosage: UNK
     Route: 065
     Dates: start: 20150826
  8. ASPIRIN                            /00002701/ [Concomitant]
     Active Substance: ASPIRIN
     Indication: CARDIOVASCULAR DISORDER
     Dosage: UNK
     Route: 065
     Dates: start: 20130708
  9. GLYCERYL TRINITRATE [Concomitant]
     Active Substance: NITROGLYCERIN
     Indication: PAIN
     Dosage: UNK
     Route: 065
     Dates: start: 20130902
  10. SERTRALINE HYDROCHLORIDE. [Concomitant]
     Active Substance: SERTRALINE HYDROCHLORIDE
     Indication: DEPRESSION
     Dosage: UNK
     Route: 065
     Dates: start: 20110816
  11. CARVEDILOL. [Suspect]
     Active Substance: CARVEDILOL
     Indication: ANGINA PECTORIS
     Dosage: 25 MG, PER DAY
     Route: 065
     Dates: start: 20110616
  12. BOCOCIZUMAB [Suspect]
     Active Substance: BOCOCIZUMAB
     Indication: CARDIOVASCULAR DISORDER
     Dosage: 150 MG, EVERY 2 WEEKS
     Route: 058
     Dates: start: 20150908, end: 20161101
  13. ENTRESTO [Concomitant]
     Active Substance: SACUBITRIL\VALSARTAN
     Indication: VENTRICULAR DYSFUNCTION
     Dosage: UNK, 49/51
     Route: 065
     Dates: start: 20160701
  14. METHOTREXATE. [Concomitant]
     Active Substance: METHOTREXATE
     Indication: PSORIASIS
     Dosage: UNK
     Route: 065
     Dates: start: 20150727
  15. PARACETAMOL [Concomitant]
     Active Substance: ACETAMINOPHEN
     Indication: PAIN IN EXTREMITY
     Dosage: UNK
     Route: 065
     Dates: start: 20110616
  16. OMEPRAZOLE. [Suspect]
     Active Substance: OMEPRAZOLE
     Indication: DYSPEPSIA
     Dosage: UNK
     Route: 048
     Dates: start: 20140116
  17. FUROSEMIDE. [Suspect]
     Active Substance: FUROSEMIDE
     Indication: PULMONARY OEDEMA
  18. KAPAKE [Concomitant]
     Active Substance: ACETAMINOPHEN\CODEINE PHOSPHATE
     Indication: PAIN IN EXTREMITY
     Dosage: UNK
     Route: 065
     Dates: start: 20110616
  19. RAMIPRIL. [Suspect]
     Active Substance: RAMIPRIL
     Indication: CARDIAC FAILURE
     Dosage: 1.25 MG, PER DAY
     Route: 048
     Dates: start: 20130813, end: 20160629
  20. FUROSEMIDE. [Suspect]
     Active Substance: FUROSEMIDE
     Indication: LUNG DISORDER
  21. CODEINE PHOSPHATE [Concomitant]
     Active Substance: CODEINE PHOSPHATE
     Indication: PRODUCT USED FOR UNKNOWN INDICATION
     Dosage: UNK
     Route: 065

REACTIONS (11)
  - Hypotension [Recovered/Resolved]
  - Cardiac failure [Unknown]
  - Contusion [Recovered/Resolved]
  - Fluid retention [Unknown]
  - Ventricular dysfunction [Unknown]
  - Angina pectoris [Unknown]
  - Anaemia [Unknown]
  - Psoriasis [Unknown]
  - Oedema peripheral [Not Recovered/Not Resolved]
  - Pulmonary oedema [Unknown]
  - Presyncope [Unknown]

NARRATIVE: CASE EVENT DATE: 20130919
